FAERS Safety Report 26144677 (Version 1)
Quarter: 2025Q4

REPORT INFORMATION
  Report Type: Spontaneous
  Country: US (occurrence: None)
  Receive Date: 20251210
  Receipt Date: 20251210
  Transmission Date: 20260118
  Serious: Yes (Hospitalization)
  Sender: FDA-CTU
  Company Number: None

PATIENT
  Age: 68 Year
  Sex: Male
  Weight: 59 kg

DRUGS (1)
  1. ROSUVASTATIN CALCIUM [Suspect]
     Active Substance: ROSUVASTATIN CALCIUM
     Indication: Hyperlipidaemia
     Dosage: FREQUENCY : DAILY;
     Route: 048
     Dates: start: 20231204, end: 20250808

REACTIONS (3)
  - Myalgia [None]
  - Acute kidney injury [None]
  - Rhabdomyolysis [None]

NARRATIVE: CASE EVENT DATE: 20250731
